FAERS Safety Report 15044813 (Version 2)
Quarter: 2019Q3

REPORT INFORMATION
  Report Type: Spontaneous
  Country: GR (occurrence: GR)
  Receive Date: 20180621
  Receipt Date: 20190722
  Transmission Date: 20191004
  Serious: Yes (Other)
  Sender: FDA-Public Use
  Company Number: GR-MYLANLABS-2018M1040328

PATIENT
  Age: 49 Year
  Sex: Male
  Weight: 107 kg

DRUGS (21)
  1. SODIUM LACTATE. [Concomitant]
     Active Substance: SODIUM LACTATE
     Dosage: UNK
  2. DIAZEPAM. [Concomitant]
     Active Substance: DIAZEPAM
     Indication: ANAESTHETIC PREMEDICATION
     Dosage: 5 MILLIGRAM
     Route: 048
  3. MAGNESIUM [Suspect]
     Active Substance: MAGNESIUM
     Indication: BRONCHOSPASM
     Dosage: 2 GRAM DOSAGE FORM: UNSPECIFIED
     Route: 042
  4. BUDESONIDE. [Concomitant]
     Active Substance: BUDESONIDE
     Indication: ANAESTHETIC PREMEDICATION
     Dosage: UNK
  5. MIDAZOLAM [Suspect]
     Active Substance: MIDAZOLAM HYDROCHLORIDE
     Indication: MAINTENANCE OF ANAESTHESIA
     Dosage: 2 MILLIGRAM DOSAGE FORM: UNSPECIFIED
     Route: 042
  6. HYDROCORTISONE. [Concomitant]
     Active Substance: HYDROCORTISONE
     Indication: PRODUCT USED FOR UNKNOWN INDICATION
     Dosage: 200 MG, UNK
  7. POTASSIUM CHLORIDE. [Concomitant]
     Active Substance: POTASSIUM CHLORIDE
     Dosage: UNK
  8. SALBUTAMOL                         /00139502/ [Concomitant]
     Active Substance: ALBUTEROL SULFATE
     Indication: ANAESTHETIC PREMEDICATION
     Dosage: UNK
     Route: 055
  9. LIDOCAINE. [Suspect]
     Active Substance: LIDOCAINE
     Indication: INDUCTION OF ANAESTHESIA
     Dosage: 100 MILLIGRAM DOSAGE FORM: UNSPECIFIED
     Route: 065
  10. ADRENALINE                         /00003901/ [Concomitant]
     Active Substance: EPINEPHRINE
     Indication: WHEEZING
     Dosage: 3 MG, UNK
     Route: 042
  11. RANITIDINE. [Suspect]
     Active Substance: RANITIDINE
     Indication: PRODUCT USED FOR UNKNOWN INDICATION
     Dosage: 50 MILLIGRAM DOSAGE FORM: UNSPECIFIED
     Route: 042
  12. PROPOFOL. [Suspect]
     Active Substance: PROPOFOL
     Indication: INDUCTION OF ANAESTHESIA
     Dosage: DOSAGE FORM: UNSPECIFIED
     Route: 065
  13. CALCIUM CHLORIDE. [Concomitant]
     Active Substance: CALCIUM CHLORIDE
     Dosage: UNK
  14. FENTANYL. [Suspect]
     Active Substance: FENTANYL
     Indication: INDUCTION OF ANAESTHESIA
     Dosage: 0.25 MILLIGRAM DOSAGE FORM: SOLUTION
     Route: 042
  15. ROCURONIUM [Suspect]
     Active Substance: ROCURONIUM BROMIDE
     Indication: INDUCTION OF ANAESTHESIA
     Dosage: 70 MILLIGRAM DOSAGE FORM: UNSPECIFIED
     Route: 065
  16. KETAMINE [Suspect]
     Active Substance: KETAMINE
     Dosage: DOSAGE FORM: UNSPECIFIED, TWO BOLUS DOSES
     Route: 042
  17. IPRATROPIUM BROMIDE. [Concomitant]
     Active Substance: IPRATROPIUM BROMIDE
     Indication: ANAESTHETIC PREMEDICATION
     Dosage: UNK
  18. SODIUM CHLORIDE. [Concomitant]
     Active Substance: SODIUM CHLORIDE
     Dosage: UNK
  19. KETAMINE [Suspect]
     Active Substance: KETAMINE
     Indication: BRONCHOSPASM
     Dosage: DOSAGE FORM: UNSPECIFIED,^CONTINUOUS INFUSION (2MG/KG/H)
     Route: 042
  20. SEVOFLURANE. [Suspect]
     Active Substance: SEVOFLURANE
     Indication: MAINTENANCE OF ANAESTHESIA
     Dosage: DOSAGE FORM: UNSPECIFIED
     Route: 065
  21. DIMETINDENE MALEATE [Concomitant]
     Active Substance: DIMETHINDENE MALEATE
     Indication: PRODUCT USED FOR UNKNOWN INDICATION
     Dosage: 4MG/100ML
     Route: 042

REACTIONS (3)
  - Hypersensitivity [Recovered/Resolved]
  - Flushing [Recovered/Resolved]
  - Hypotension [Recovered/Resolved]
